FAERS Safety Report 7181774-6 (Version None)
Quarter: 2010Q4

REPORT INFORMATION
  Report Type: 
  Country: None (occurrence: None)
  Receive Date: 20101221
  Receipt Date: 20100430
  Transmission Date: 20110411
  Serious: No
  Sender: FDA-Public Use
  Company Number: US-AMGEN-KDL409743

PATIENT

DRUGS (13)
  1. ENBREL [Suspect]
     Indication: PRODUCT USED FOR UNKNOWN INDICATION
     Dosage: 50 MG, QWK
     Route: 058
  2. NAPROXEN [Concomitant]
  3. CLONAZEPAM [Concomitant]
     Dosage: .5 MG, UNK
  4. ATENOLOL [Concomitant]
     Dosage: 25 MG, UNK
  5. OMEPRAZOLE [Concomitant]
     Dosage: 10 MG, UNK
  6. FOLIC ACID [Concomitant]
     Dosage: 1 MG, UNK
  7. MELOXICAM [Concomitant]
     Dosage: 7.5 MG, UNK
  8. CYANOCOBALAMIN [Concomitant]
     Dosage: UNK UNK, UNK
  9. FLAX SEED OIL [Concomitant]
  10. DEXTROPROPOXYPHENE NAPSILATE W/ ACETAMINOPHEN [Concomitant]
     Dosage: UNK UNK, UNK
  11. COLECALCIFEROL [Concomitant]
     Dosage: UNK UNK, UNK
  12. ERGOCALCIFEROL [Concomitant]
     Dosage: UNK UNK, UNK
  13. MULTI-VITAMINS [Concomitant]
     Dosage: UNK UNK, UNK

REACTIONS (2)
  - INJECTION SITE REACTION [None]
  - PYREXIA [None]
